FAERS Safety Report 10749471 (Version 3)
Quarter: 2020Q1

REPORT INFORMATION
  Report Type: Spontaneous
  Country: US (occurrence: US)
  Receive Date: 20150129
  Receipt Date: 20200325
  Transmission Date: 20200409
  Serious: Yes (Other)
  Sender: FDA-Public Use
  Company Number: US-PFIZER INC-2015032445

PATIENT
  Age: 61 Year
  Sex: Male
  Weight: 77 kg

DRUGS (1)
  1. REVATIO [Suspect]
     Active Substance: SILDENAFIL CITRATE
     Indication: CARDIAC DISORDER
     Dosage: 20 MG, THREE TIMES A DAY (1 TABLETS BY MOUTH 3 TIMES A DAY)
     Route: 048
     Dates: start: 2007

REACTIONS (4)
  - Renal cancer [Unknown]
  - Product prescribing error [Unknown]
  - Renal failure [Unknown]
  - Fistula [Unknown]

NARRATIVE: CASE EVENT DATE: 2009
